FAERS Safety Report 12143348 (Version 2)
Quarter: 2017Q3

REPORT INFORMATION
  Report Type: Report from Study
  Country: US (occurrence: US)
  Receive Date: 20160304
  Receipt Date: 20170921
  Transmission Date: 20171127
  Serious: Yes (Other)
  Sender: FDA-Public Use
  Company Number: US-ROCHE-1719916

PATIENT

DRUGS (6)
  1. SORAFENIB [Suspect]
     Active Substance: SORAFENIB
     Indication: METASTATIC NEOPLASM
     Dosage: ARM:B, 200 MG PO DAILY TO 400MG PO BID Q 28 DAYS
     Route: 048
  2. VEMURAFENIB. [Suspect]
     Active Substance: VEMURAFENIB
     Indication: BRAF V600E MUTATION POSITIVE
  3. CRIZOTINIB [Suspect]
     Active Substance: CRIZOTINIB
     Indication: METASTATIC NEOPLASM
     Dosage: ARM:A, 250 MG PO DAILY OR BID Q 28 DAYS
     Route: 048
  4. CRIZOTINIB [Suspect]
     Active Substance: CRIZOTINIB
     Indication: BRAF V600E MUTATION POSITIVE
  5. SORAFENIB [Suspect]
     Active Substance: SORAFENIB
     Indication: BRAF V600E MUTATION POSITIVE
  6. VEMURAFENIB. [Suspect]
     Active Substance: VEMURAFENIB
     Indication: METASTATIC NEOPLASM
     Dosage: (DOSE: 240-960MG, ARM:A)?(DOSE: 240-720MG, ARM:B)
     Route: 048

REACTIONS (10)
  - Hypertension [Unknown]
  - Fatigue [Unknown]
  - Embolism [Unknown]
  - Diarrhoea [Unknown]
  - Eye inflammation [Unknown]
  - Anaemia [Unknown]
  - Thrombocytopenia [Unknown]
  - Headache [Unknown]
  - Rash [Unknown]
  - Neutropenia [Unknown]
